FAERS Safety Report 8170203-1 (Version None)
Quarter: 2012Q1

REPORT INFORMATION
  Report Type: 
  Country: None (occurrence: None)
  Receive Date: 20120228
  Receipt Date: 20120217
  Transmission Date: 20120608
  Serious: Yes (Other)
  Sender: FDA-Public Use
  Company Number: PHEH2012US004120

PATIENT
  Sex: Male

DRUGS (3)
  1. EXFORGE [Suspect]
     Dosage: UNK UKN, UNK
  2. VALTURNA [Suspect]
     Dosage: 300/320 MG QD
  3. BLOOD THINNER [Concomitant]
     Dosage: UNK UKN, UNK

REACTIONS (9)
  - CONTUSION [None]
  - SKIN DISCOLOURATION [None]
  - CARDIAC DISORDER [None]
  - HAEMORRHAGIC DISORDER [None]
  - ARTHRITIS [None]
  - GAIT DISTURBANCE [None]
  - RENAL DISORDER [None]
  - DIABETES MELLITUS [None]
  - CONFUSIONAL STATE [None]
